FAERS Safety Report 10453191 (Version 6)
Quarter: 2015Q3

REPORT INFORMATION
  Report Type: Report from Study
  Country: US (occurrence: US)
  Receive Date: 20140915
  Receipt Date: 20150908
  Transmission Date: 20151125
  Serious: Yes (Other)
  Sender: FDA-Public Use
  Company Number: US-SA-2013SA095687

PATIENT
  Age: 68 Year
  Sex: Female
  Weight: 44.45 kg

DRUGS (27)
  1. AUBAGIO [Suspect]
     Active Substance: TERIFLUNOMIDE
     Indication: RELAPSING-REMITTING MULTIPLE SCLEROSIS
     Route: 048
     Dates: start: 20130914, end: 20140115
  2. DYMISTA [Concomitant]
     Active Substance: AZELASTINE HYDROCHLORIDE\FLUTICASONE PROPIONATE
  3. AUBAGIO [Suspect]
     Active Substance: TERIFLUNOMIDE
     Indication: RELAPSING-REMITTING MULTIPLE SCLEROSIS
     Route: 048
     Dates: start: 20130914, end: 20140115
  4. AUBAGIO [Suspect]
     Active Substance: TERIFLUNOMIDE
     Indication: RELAPSING-REMITTING MULTIPLE SCLEROSIS
     Route: 048
     Dates: start: 2015
  5. ALENDRONATE [Concomitant]
     Active Substance: ALENDRONATE SODIUM
     Indication: BONE LOSS
     Dates: start: 2011
  6. SYNTHROID [Concomitant]
     Active Substance: LEVOTHYROXINE SODIUM
  7. MECLIZINE [Concomitant]
     Active Substance: MECLIZINE\MECLIZINE HYDROCHLORIDE
  8. AUBAGIO [Suspect]
     Active Substance: TERIFLUNOMIDE
     Indication: MULTIPLE SCLEROSIS
     Route: 048
     Dates: start: 20141027
  9. MELOXICAM. [Concomitant]
     Active Substance: MELOXICAM
  10. GABAPENTIN. [Concomitant]
     Active Substance: GABAPENTIN
     Indication: HEADACHE
     Dates: start: 20121101
  11. NEURONTIN [Concomitant]
     Active Substance: GABAPENTIN
  12. PREDNISONE. [Concomitant]
     Active Substance: PREDNISONE
  13. AUBAGIO [Suspect]
     Active Substance: TERIFLUNOMIDE
     Indication: MULTIPLE SCLEROSIS
     Route: 048
     Dates: start: 20130914, end: 20140115
  14. AUBAGIO [Suspect]
     Active Substance: TERIFLUNOMIDE
     Indication: RELAPSING-REMITTING MULTIPLE SCLEROSIS
     Route: 048
     Dates: start: 20141027
  15. DYMISTA [Concomitant]
     Active Substance: AZELASTINE HYDROCHLORIDE\FLUTICASONE PROPIONATE
     Indication: HYPERSENSITIVITY
  16. DYMISTA [Concomitant]
     Active Substance: AZELASTINE HYDROCHLORIDE\FLUTICASONE PROPIONATE
     Indication: SINUS CONGESTION
  17. NAPROXEN. [Concomitant]
     Active Substance: NAPROXEN
  18. AUBAGIO [Suspect]
     Active Substance: TERIFLUNOMIDE
     Indication: MULTIPLE SCLEROSIS
     Route: 048
     Dates: start: 2014, end: 2015
  19. PROTONIX [Concomitant]
     Active Substance: PANTOPRAZOLE SODIUM
     Dosage: 20 MG
  20. VITAMIN D [Concomitant]
     Active Substance: CHOLECALCIFEROL
     Indication: BONE LOSS
     Dates: start: 20121101
  21. AUBAGIO [Suspect]
     Active Substance: TERIFLUNOMIDE
     Indication: MULTIPLE SCLEROSIS
     Route: 048
     Dates: start: 20130914, end: 20140115
  22. CILOSTAZOL. [Concomitant]
     Active Substance: CILOSTAZOL
  23. AUBAGIO [Suspect]
     Active Substance: TERIFLUNOMIDE
     Indication: MULTIPLE SCLEROSIS
     Route: 048
     Dates: start: 2015
  24. BACLOFEN. [Concomitant]
     Active Substance: BACLOFEN
  25. ASPIRIN. [Concomitant]
     Active Substance: ASPIRIN
     Dates: start: 2011
  26. AUBAGIO [Suspect]
     Active Substance: TERIFLUNOMIDE
     Indication: RELAPSING-REMITTING MULTIPLE SCLEROSIS
     Route: 048
     Dates: start: 2014, end: 2015
  27. AMITRIPTYLIN [Concomitant]
     Active Substance: AMITRIPTYLINE
     Dosage: 100 MG

REACTIONS (40)
  - Head discomfort [Not Recovered/Not Resolved]
  - Sinusitis [Unknown]
  - Choking sensation [Unknown]
  - Sleep disorder [Unknown]
  - Feeling of body temperature change [Unknown]
  - Sensation of foreign body [Unknown]
  - Tremor [Unknown]
  - Laceration [Unknown]
  - Rhinorrhoea [Not Recovered/Not Resolved]
  - Nasal congestion [Unknown]
  - Peripheral swelling [Unknown]
  - Blood cholesterol increased [Unknown]
  - Candida infection [Unknown]
  - Eye disorder [Unknown]
  - Pneumonia [Unknown]
  - Bronchitis [Unknown]
  - Cough [Not Recovered/Not Resolved]
  - Cough [Unknown]
  - Dysphonia [Unknown]
  - Chronic obstructive pulmonary disease [Unknown]
  - Limb discomfort [Not Recovered/Not Resolved]
  - Hypersensitivity [Unknown]
  - Upper respiratory tract infection [Not Recovered/Not Resolved]
  - Sneezing [Unknown]
  - Ear discomfort [Not Recovered/Not Resolved]
  - Weight decreased [Recovering/Resolving]
  - Skin discolouration [Unknown]
  - Back pain [Not Recovered/Not Resolved]
  - Rhinorrhoea [Unknown]
  - Influenza [Unknown]
  - Vertigo [Unknown]
  - Respiratory tract infection [Not Recovered/Not Resolved]
  - Road traffic accident [Unknown]
  - Musculoskeletal discomfort [Not Recovered/Not Resolved]
  - Tachycardia [Unknown]
  - Weight increased [Unknown]
  - Derealisation [Unknown]
  - Gait disturbance [Recovering/Resolving]
  - Arthralgia [Unknown]
  - Drug dose omission [Unknown]

NARRATIVE: CASE EVENT DATE: 2013
